FAERS Safety Report 13243773 (Version 2)
Quarter: 2017Q1

REPORT INFORMATION
  Report Type: Report from Study
  Country: None (occurrence: US)
  Receive Date: 20170216
  Receipt Date: 20170303
  Transmission Date: 20170428
  Serious: Yes (Other)
  Sender: FDA-Public Use
  Company Number: US-ABBVIE-17K-163-1828752-00

PATIENT
  Age: 48 Year
  Sex: Female

DRUGS (1)
  1. HUMIRA [Suspect]
     Active Substance: ADALIMUMAB
     Indication: CROHN^S DISEASE
     Route: 058
     Dates: start: 20130717

REACTIONS (8)
  - Joint stiffness [Recovering/Resolving]
  - Meniscus injury [Recovered/Resolved]
  - Carpal tunnel syndrome [Recovering/Resolving]
  - Lupus-like syndrome [Not Recovered/Not Resolved]
  - Tendonitis [Recovering/Resolving]
  - Joint swelling [Recovering/Resolving]
  - Trigger finger [Recovering/Resolving]
  - Arthralgia [Recovering/Resolving]

NARRATIVE: CASE EVENT DATE: 201605
